FAERS Safety Report 18686355 (Version 1)
Quarter: 2020Q4

REPORT INFORMATION
  Report Type: Spontaneous
  Country: GB (occurrence: GB)
  Receive Date: 20201230
  Receipt Date: 20201230
  Transmission Date: 20210114
  Serious: Yes (Other)
  Sender: FDA-Public Use
  Company Number: GB-SLATE RUN PHARMACEUTICALS-20GB000363

PATIENT

DRUGS (5)
  1. RIFAMPICIN [Concomitant]
     Active Substance: RIFAMPIN
     Indication: MYCOBACTERIAL INFECTION
     Route: 065
  2. ETHAMBUTOL [Concomitant]
     Active Substance: ETHAMBUTOL HYDROCHLORIDE
     Indication: MYCOBACTERIAL INFECTION
     Route: 065
  3. VORICONAZOLE. [Suspect]
     Active Substance: VORICONAZOLE
     Indication: BRONCHOPULMONARY ASPERGILLOSIS
     Route: 065
  4. VORICONAZOLE. [Suspect]
     Active Substance: VORICONAZOLE
     Indication: ASPERGILLOMA
  5. AZITHROMYCIN USP [Suspect]
     Active Substance: AZITHROMYCIN
     Indication: MYCOBACTERIAL INFECTION
     Route: 065

REACTIONS (4)
  - Aspergillus infection [None]
  - Mycobacterial infection [Recovering/Resolving]
  - Pulmonary cavitation [Recovering/Resolving]
  - Off label use [Unknown]
